FAERS Safety Report 5502175-X (Version None)
Quarter: 2007Q4

REPORT INFORMATION
  Report Type: 
  Country: None (occurrence: None)
  Receive Date: 20071030
  Receipt Date: 20071023
  Transmission Date: 20080405
  Serious: Yes (Death, Life-Threatening)
  Sender: FDA-Public Use
  Company Number: UA-ASTRAZENECA-2007SE05583

PATIENT
  Age: 17917 Day
  Sex: Female

DRUGS (3)
  1. ZOLADEX [Suspect]
     Indication: BREAST CANCER
     Route: 058
     Dates: start: 20071003
  2. TAMOXIFEN CITRATE [Suspect]
     Indication: BREAST CANCER
     Route: 048
     Dates: start: 20071003
  3. PAMIDRONATE DISODIUM [Concomitant]
     Indication: METASTASES TO BONE
     Dates: start: 20071002

REACTIONS (1)
  - ENCEPHALOPATHY [None]
